FAERS Safety Report 23087407 (Version 1)
Quarter: 2023Q4

REPORT INFORMATION
  Report Type: Spontaneous
  Country: US (occurrence: US)
  Receive Date: 20231020
  Receipt Date: 20231020
  Transmission Date: 20240110
  Serious: Yes (Death, Life-Threatening, Hospitalization, Other)
  Sender: FDA-Public Use
  Company Number: US-MLMSERVICE-20231005-4585107-1

PATIENT
  Age: 44 Year
  Sex: Male

DRUGS (1)
  1. PREDNISONE [Suspect]
     Active Substance: PREDNISONE
     Indication: Gout
     Dosage: UNK
     Route: 065

REACTIONS (14)
  - Cardiogenic shock [Fatal]
  - Cardiac tamponade [Fatal]
  - Cardiac arrest [Fatal]
  - Gastrointestinal haemorrhage [Fatal]
  - Pancytopenia [Fatal]
  - Renal failure [Fatal]
  - Respiratory failure [Fatal]
  - Shock haemorrhagic [Fatal]
  - Systemic candida [Fatal]
  - Thrombosis [Fatal]
  - Pneumocystis jirovecii pneumonia [Recovering/Resolving]
  - Q fever [Unknown]
  - Encephalopathy [Unknown]
  - Septic shock [Unknown]
